FAERS Safety Report 8901941 (Version 1)
Quarter: 2012Q4

REPORT INFORMATION
  Report Type: Spontaneous
  Country: US (occurrence: None)
  Receive Date: 20121109
  Receipt Date: 20121109
  Transmission Date: 20130627
  Serious: Yes (Hospitalization)
  Sender: FDA-Public Use
  Company Number: None

PATIENT
  Age: 44 Year
  Sex: Male
  Weight: 127.3 kg

DRUGS (1)
  1. TACROLIMUS [Suspect]
     Route: 048

REACTIONS (3)
  - Melaena [None]
  - Thrombocytopenia [None]
  - Renal failure acute [None]
